FAERS Safety Report 19954454 (Version 2)
Quarter: 2022Q1

REPORT INFORMATION
  Report Type: Spontaneous
  Country: CA (occurrence: CA)
  Receive Date: 20211013
  Receipt Date: 20220223
  Transmission Date: 20220423
  Serious: Yes (Other)
  Sender: FDA-Public Use
  Company Number: CA-ELI_LILLY_AND_COMPANY-CA202110001869

PATIENT
  Age: 10 Year
  Sex: Male
  Weight: 24 kg

DRUGS (3)
  1. ATOMOXETINE HYDROCHLORIDE [Suspect]
     Active Substance: ATOMOXETINE HYDROCHLORIDE
     Indication: Attention deficit hyperactivity disorder
     Dosage: 10 MG, DAILY
     Route: 048
     Dates: start: 20200402
  2. ATOMOXETINE HYDROCHLORIDE [Suspect]
     Active Substance: ATOMOXETINE HYDROCHLORIDE
     Dosage: 10 MG, DAILY
     Route: 048
     Dates: end: 20200803
  3. MELATONIN [Concomitant]
     Active Substance: MELATONIN
     Indication: Product used for unknown indication
     Dosage: UNK UNK, OTHER (AT BEDTIME)
     Route: 065

REACTIONS (2)
  - Self-injurious ideation [Recovering/Resolving]
  - Suicidal ideation [Recovered/Resolved]

NARRATIVE: CASE EVENT DATE: 20200601
